FAERS Safety Report 10796290 (Version 3)
Quarter: 2015Q1

REPORT INFORMATION
  Report Type: Spontaneous
  Country: JP (occurrence: JP)
  Receive Date: 20150216
  Receipt Date: 20150219
  Transmission Date: 20150721
  Serious: Yes (Other)
  Sender: FDA-Public Use
  Company Number: JP-ASTRAZENECA-2015SE13412

PATIENT
  Age: 85 Year
  Sex: Female
  Weight: 38 kg

DRUGS (6)
  1. ASPARA POTASSIUM [Concomitant]
     Active Substance: POTASSIUM ASPARTATE
     Indication: HYPOKALAEMIA
     Route: 048
     Dates: start: 20150124, end: 20150202
  2. LASIX [Concomitant]
     Active Substance: FUROSEMIDE
     Indication: CARDIAC FAILURE
     Route: 048
     Dates: start: 20150122
  3. NEXIUM [Suspect]
     Active Substance: ESOMEPRAZOLE MAGNESIUM
     Route: 048
     Dates: start: 20150124, end: 20150202
  4. TSUMURA YOKUKANSAN EXTRACT GRANULES FOR ETHICAL USE [Suspect]
     Active Substance: HERBALS
     Indication: DELIRIUM
     Route: 048
     Dates: start: 20150126, end: 20150202
  5. LASIX [Concomitant]
     Active Substance: FUROSEMIDE
     Indication: CARDIAC FAILURE
     Route: 048
     Dates: start: 20150112, end: 20150116
  6. SPIRONOLACTONE. [Concomitant]
     Active Substance: SPIRONOLACTONE
     Indication: AORTIC VALVE STENOSIS
     Route: 048
     Dates: start: 20150122, end: 20150207

REACTIONS (2)
  - Hyperammonaemia [Recovered/Resolved]
  - Altered state of consciousness [Recovered/Resolved]

NARRATIVE: CASE EVENT DATE: 20150202
